FAERS Safety Report 9001423 (Version 1)
Quarter: 2013Q1

REPORT INFORMATION
  Report Type: Spontaneous
  Country: US (occurrence: US)
  Receive Date: 20130107
  Receipt Date: 20130107
  Transmission Date: 20140127
  Serious: Yes (Hospitalization)
  Sender: FDA-Public Use
  Company Number: US-009507513-1301USA001247

PATIENT
  Age: 6 Year
  Sex: Female

DRUGS (7)
  1. SINGULAIR [Suspect]
  2. MK-0000 [Suspect]
  3. AMOXICILLIN [Suspect]
     Dosage: UNK, UNK, OCCASIONALY
  4. PULMICORT [Suspect]
  5. VENTOLIN (ALBUTEROL SULFATE) [Suspect]
  6. CECLOR [Suspect]
     Dosage: UNK, UNK, OCCASIONALY
  7. MUCOLYTICUM [Suspect]

REACTIONS (3)
  - Vasculitis [Unknown]
  - Gastrointestinal haemorrhage [Unknown]
  - Conjunctival haemorrhage [Unknown]
